FAERS Safety Report 10037462 (Version 1)
Quarter: 2014Q1

REPORT INFORMATION
  Report Type: Spontaneous
  Country: US (occurrence: None)
  Receive Date: 20140325
  Receipt Date: 20140325
  Transmission Date: 20141002
  Serious: Yes (Other)
  Sender: FDA-Public Use
  Company Number: None

PATIENT
  Age: 74 Year
  Sex: Female
  Weight: 67.59 kg

DRUGS (5)
  1. PROLIA (DENOSUMAB) INJECTION AMGEN [Suspect]
     Indication: OSTEOPOROSIS POSTMENOPAUSAL
     Dosage: 60MG?TWICE YEARLY I^VE ONLY HAD ONE ?INJECTION
     Dates: start: 20140219
  2. SIMVASTATIN [Concomitant]
  3. 1 ADAY VITAMIN [Concomitant]
  4. ASPIRIN [Concomitant]
  5. FISH OIL [Concomitant]

REACTIONS (3)
  - Cellulitis [None]
  - Ear pain [None]
  - Oropharyngeal pain [None]
